FAERS Safety Report 8242547-6 (Version None)
Quarter: 2012Q1

REPORT INFORMATION
  Report Type: 
  Country: None (occurrence: None)
  Receive Date: 20120329
  Receipt Date: 20120323
  Transmission Date: 20120608
  Serious: Yes (Hospitalization)
  Sender: FDA-Public Use
  Company Number: PHHY2012AR026247

PATIENT
  Sex: Female

DRUGS (1)
  1. TRILEPTAL [Suspect]
     Indication: EPILEPSY
     Dosage: 300 MG TWICE DAILY

REACTIONS (2)
  - MATERNAL EXPOSURE DURING PREGNANCY [None]
  - UTERINE CONTRACTIONS DURING PREGNANCY [None]
